FAERS Safety Report 7546822-X (Version None)
Quarter: 2011Q2

REPORT INFORMATION
  Report Type: 
  Country: None (occurrence: None)
  Receive Date: 20110607
  Receipt Date: 20110523
  Transmission Date: 20111010
  Serious: Yes (Other)
  Sender: FDA-Public Use
  Company Number: 2011MA006324

PATIENT
  Age: 9 Year
  Sex: Female

DRUGS (1)
  1. PHENYTOIN [Suspect]
     Indication: EPILEPSY
     Dosage: 10MG/K;OD

REACTIONS (2)
  - GRAND MAL CONVULSION [None]
  - ANTICONVULSANT DRUG LEVEL INCREASED [None]
